FAERS Safety Report 19279507 (Version 1)
Quarter: 2021Q2

REPORT INFORMATION
  Report Type: Spontaneous
  Country: US (occurrence: US)
  Receive Date: 20210520
  Receipt Date: 20210520
  Transmission Date: 20210717
  Serious: No
  Sender: FDA-Public Use
  Company Number: US-SA-2021SA166514

PATIENT
  Age: 32 Year
  Sex: Male

DRUGS (7)
  1. PREDNISONE. [Concomitant]
     Active Substance: PREDNISONE
  2. XOLAIR [Concomitant]
     Active Substance: OMALIZUMAB
  3. TRAZODONE [Concomitant]
     Active Substance: TRAZODONE HYDROCHLORIDE
  4. SINGULAIR [Concomitant]
     Active Substance: MONTELUKAST SODIUM
  5. DUPIXENT [Suspect]
     Active Substance: DUPILUMAB
     Indication: IDIOPATHIC URTICARIA
     Dosage: UNK
     Route: 058
     Dates: start: 20210406
  6. SERTRALINE [Concomitant]
     Active Substance: SERTRALINE HYDROCHLORIDE
  7. EPINEPHRINE. [Concomitant]
     Active Substance: EPINEPHRINE

REACTIONS (21)
  - Joint stiffness [Unknown]
  - Flushing [Unknown]
  - Arthralgia [Unknown]
  - Palpitations [Unknown]
  - Product use in unapproved indication [Unknown]
  - Oropharyngeal pain [Unknown]
  - Sneezing [Unknown]
  - Nasal congestion [Unknown]
  - Blood immunoglobulin E increased [Unknown]
  - Dyspepsia [Unknown]
  - Eye pruritus [Unknown]
  - Fatigue [Unknown]
  - Upper-airway cough syndrome [Unknown]
  - Dry skin [Unknown]
  - Rhinorrhoea [Unknown]
  - Tinnitus [Unknown]
  - Eosinophil count increased [Unknown]
  - Illness [Unknown]
  - Urticaria [Unknown]
  - Oedema [Unknown]
  - Dyspnoea [Unknown]

NARRATIVE: CASE EVENT DATE: 2021
